FAERS Safety Report 6063254-4 (Version None)
Quarter: 2009Q1

REPORT INFORMATION
  Report Type: 
  Country: None (occurrence: None)
  Receive Date: 20090203
  Receipt Date: 20090122
  Transmission Date: 20090719
  Serious: Yes (Life-Threatening)
  Sender: FDA-Public Use
  Company Number: DE-ROCHE-599572

PATIENT
  Sex: Male

DRUGS (11)
  1. MYCOPHENOLATE MOFETIL [Suspect]
     Indication: LIVER TRANSPLANT
     Dosage: THE START DATE OF THERAPY WITH MYCOPHENOLATE MOFETIL WAS AMENDED FROM 4-NOV-2008 TO 5-NOV-2008.
     Route: 048
     Dates: start: 20081105, end: 20081106
  2. BELATACEPT [Suspect]
     Indication: LIVER TRANSPLANT
     Dosage: DOSING REGIMEN BLINDED.
     Route: 042
     Dates: start: 20081104, end: 20081106
  3. BLINDED BASILIXIMAB [Suspect]
     Indication: LIVER TRANSPLANT
     Route: 042
     Dates: start: 20081104, end: 20081106
  4. TOREM [Concomitant]
     Dates: start: 20081104
  5. TOREM [Concomitant]
     Dosage: INCREASE IN DOSING OF TORSEMIDE.
  6. URBASON [Concomitant]
     Dates: start: 20081104
  7. PANTOPRAZOLE [Concomitant]
     Dosage: DRUG NAME REPORTED: PANTOPRAZOLE SODIUM.
     Dates: start: 20081105
  8. HYDROCORTISONE [Concomitant]
     Dates: start: 20081105, end: 20081105
  9. NITROLINGUAL [Concomitant]
     Dates: start: 20081104
  10. HEPARIN [Concomitant]
     Dates: start: 20081105
  11. ACETYLCYSTEINE [Concomitant]
     Dates: start: 20081109

REACTIONS (8)
  - BRONCHOPULMONARY ASPERGILLOSIS [None]
  - COMPLICATIONS OF TRANSPLANTED LIVER [None]
  - GRAFT LOSS [None]
  - HAEMORRHAGE [None]
  - HEPATIC FAILURE [None]
  - MYOCARDIAL INFARCTION [None]
  - RENAL FAILURE [None]
  - RESPIRATORY MONILIASIS [None]
